FAERS Safety Report 19146310 (Version 1)
Quarter: 2021Q2

REPORT INFORMATION
  Report Type: Spontaneous
  Country: IN (occurrence: IN)
  Receive Date: 20210416
  Receipt Date: 20210416
  Transmission Date: 20210717
  Serious: Yes (Death)
  Sender: FDA-Public Use
  Company Number: IN-PFIZER INC-2017081818

PATIENT
  Age: 71 Year
  Sex: Female
  Weight: 68.8 kg

DRUGS (2)
  1. PALBACE [Suspect]
     Active Substance: PALBOCICLIB
     Indication: BREAST CANCER METASTATIC
     Dosage: 125 MG, CYCLIC, (DAILY ALONG WITH FOOD 3 WEEKS THEN 7 DAYS AND TO CONTINUE FOR 4 MONTHS)
     Route: 048
     Dates: start: 20170105
  2. FASLODEX [Concomitant]
     Active Substance: FULVESTRANT
     Dosage: 500 MG, MONTHLY
     Route: 030

REACTIONS (10)
  - Fatigue [Unknown]
  - White blood cell count decreased [Unknown]
  - Diarrhoea [Unknown]
  - Platelet count decreased [Unknown]
  - Carbohydrate antigen 15-3 increased [Unknown]
  - Full blood count decreased [Unknown]
  - Blood uric acid increased [Unknown]
  - Myocardial infarction [Fatal]
  - Dyspnoea [Unknown]
  - Haemoglobin decreased [Unknown]

NARRATIVE: CASE EVENT DATE: 2017
